FAERS Safety Report 20092845 (Version 2)
Quarter: 2021Q4

REPORT INFORMATION
  Report Type: Spontaneous
  Country: US (occurrence: US)
  Receive Date: 20211120
  Receipt Date: 20211125
  Transmission Date: 20220303
  Serious: No
  Sender: FDA-Public Use
  Company Number: US-UNITED THERAPEUTICS-UNT-2021-023401

PATIENT
  Age: 64 Year
  Sex: Female
  Weight: 79.365 kg

DRUGS (4)
  1. TYVASO [Suspect]
     Active Substance: TREPROSTINIL
     Indication: Pulmonary arterial hypertension
     Dosage: UNK
     Dates: start: 20200422
  2. TYVASO [Suspect]
     Active Substance: TREPROSTINIL
     Dosage: 18-54 ?G, QID
  3. AMBRISENTAN [Concomitant]
     Active Substance: AMBRISENTAN
     Indication: Product used for unknown indication
     Dosage: UNK
     Route: 065
  4. SILDENAFIL CITRATE [Concomitant]
     Active Substance: SILDENAFIL CITRATE
     Indication: Product used for unknown indication
     Dosage: UNK
     Route: 065

REACTIONS (5)
  - Herpes zoster [Unknown]
  - Rash pruritic [Unknown]
  - Nasopharyngitis [Unknown]
  - Sinusitis [Unknown]
  - Vaginal infection [Unknown]

NARRATIVE: CASE EVENT DATE: 20211115
